FAERS Safety Report 9279621 (Version 1)
Quarter: 2013Q2

REPORT INFORMATION
  Report Type: Report from Study
  Country: CA (occurrence: CA)
  Receive Date: 20130509
  Receipt Date: 20130509
  Transmission Date: 20140414
  Serious: Yes (Other)
  Sender: FDA-Public Use
  Company Number: CA-ROCHE-1222536

PATIENT
  Age: 65 Year
  Sex: Female
  Weight: 59 kg

DRUGS (6)
  1. RITUXAN [Suspect]
     Indication: RHEUMATOID ARTHRITIS
     Route: 042
     Dates: start: 20081008
  2. METHOTREXATE [Concomitant]
     Route: 065
  3. DIPHENHYDRAMINE HCL [Concomitant]
     Route: 048
     Dates: start: 20090923
  4. ACETAMINOPHEN [Concomitant]
     Route: 048
     Dates: start: 20090923
  5. METHYLPREDNISOLONE [Concomitant]
     Route: 042
     Dates: start: 20090923
  6. CELEBREX [Concomitant]

REACTIONS (2)
  - Arrhythmia [Recovered/Resolved]
  - Arthralgia [Not Recovered/Not Resolved]
